FAERS Safety Report 4648685-9 (Version None)
Quarter: 2005Q2

REPORT INFORMATION
  Report Type: 
  Country: None (occurrence: None)
  Receive Date: 20050429
  Receipt Date: 20050425
  Transmission Date: 20051028
  Serious: Yes (Other)
  Sender: FDA-Public Use
  Company Number: PHBS2005CN05966

PATIENT
  Age: 9 Year
  Sex: Male

DRUGS (1)
  1. TEGRETOL [Suspect]
     Dosage: 500 MG/DAY
     Route: 048
     Dates: start: 20041101

REACTIONS (1)
  - INFECTIOUS MONONUCLEOSIS [None]
